FAERS Safety Report 4967106-X (Version None)
Quarter: 2006Q2

REPORT INFORMATION
  Report Type: 
  Country: None (occurrence: None)
  Receive Date: 20060403
  Receipt Date: 20060320
  Transmission Date: 20061013
  Serious: Yes (Hospitalization)
  Sender: FDA-Public Use
  Company Number: 2005155195

PATIENT
  Age: 78 Year
  Sex: Male
  Weight: 68 kg

DRUGS (11)
  1. SUTENT [Suspect]
     Indication: RENAL CELL CARCINOMA STAGE UNSPECIFIED
     Dosage: 50 MG (50 MG, CYCLIC), ORAL
     Route: 048
     Dates: start: 20051024, end: 20051106
  2. DILTIAZEM HYDROCHLORIDE [Concomitant]
  3. LOSARTAN POTASSIUM [Concomitant]
  4. ASPEGIC 1000 [Concomitant]
  5. FONZYLANE (BUFLOMEDIL HYDROCHLORIDE) [Concomitant]
  6. IRBESARTAN [Concomitant]
  7. ALPRESS [Concomitant]
  8. IMOVANE (ZOPICLONE) [Concomitant]
  9. CALCIDIA (CALCIUM CARBONATE) [Concomitant]
  10. LASIX [Concomitant]
  11. AMOXICILLIN TRIHYDRATE [Concomitant]

REACTIONS (7)
  - DIARRHOEA [None]
  - GLOMERULOSCLEROSIS [None]
  - INFECTION [None]
  - NEPHROTIC SYNDROME [None]
  - RENAL FAILURE [None]
  - THROMBOCYTOPENIA [None]
  - THROMBOTIC MICROANGIOPATHY [None]
